FAERS Safety Report 7816404-0 (Version None)
Quarter: 2011Q4

REPORT INFORMATION
  Report Type: 
  Country: None (occurrence: None)
  Receive Date: 20111017
  Receipt Date: 20111006
  Transmission Date: 20120403
  Serious: Yes (Death, Other)
  Sender: FDA-Public Use
  Company Number: JP-BRISTOL-MYERS SQUIBB COMPANY-16058950

PATIENT
  Age: 61 Year
  Sex: Male
  Weight: 50 kg

DRUGS (14)
  1. ARTANE [Concomitant]
     Dosage: TABS.
     Dates: start: 20110812, end: 20110827
  2. LEVOTOMIN [Concomitant]
     Dosage: TABS.
     Dates: start: 20110414, end: 20110827
  3. DIAZEPAM [Concomitant]
     Dosage: TABS.
     Dates: start: 20110604, end: 20110827
  4. LULLAN [Concomitant]
     Dosage: TABS
     Dates: start: 20100826, end: 20110417
  5. ABILIFY [Suspect]
     Indication: SCHIZOPHRENIA
     Dosage: 15APR11-16APR11=2DAYS,22-22APR11=1DAY,26-27AUG11=2DAYS
     Route: 048
     Dates: start: 20110415, end: 20110827
  6. LENDORMIN [Concomitant]
     Dosage: TABS.
     Dates: start: 20110827, end: 20110827
  7. DOGMATYL [Concomitant]
     Dosage: TABS
     Dates: start: 20110414, end: 20110417
  8. NITRAZEPAM [Concomitant]
     Dosage: TABS UNK-17APR2011
     Dates: end: 20110417
  9. AKINESTAT [Concomitant]
     Dosage: TABS 22APR11:3MG/DAY
     Dates: end: 20110417
  10. MAGMITT [Concomitant]
     Dosage: TABS.UNK-17APR11 22APR11:330MG/DAY
     Route: 048
     Dates: end: 20110827
  11. LODOPIN [Concomitant]
     Dosage: TABS.2AUG-18AUG
     Dates: start: 20110802, end: 20110822
  12. SENNOSIDE [Concomitant]
     Dosage: TABS.
     Dates: end: 20110417
  13. GASMOTIN [Concomitant]
     Dosage: TABS 22APR11:5MG/DAY
     Dates: end: 20110417
  14. DIOVAN [Concomitant]
     Dosage: TAB
     Dates: start: 20101222, end: 20110417

REACTIONS (5)
  - STUPOR [None]
  - BLOOD GLUCOSE DECREASED [None]
  - HEPATIC FUNCTION ABNORMAL [None]
  - DYSPHAGIA [None]
  - PYREXIA [None]
